FAERS Safety Report 4962920-9 (Version None)
Quarter: 2006Q1

REPORT INFORMATION
  Report Type: 
  Country: None (occurrence: None)
  Receive Date: 20060331
  Receipt Date: 20060313
  Transmission Date: 20060701
  Serious: Yes (Other)
  Sender: FDA-Public Use
  Company Number: US200603003034

PATIENT
  Sex: Female

DRUGS (1)
  1. HUMULIN 70/30 [Suspect]

REACTIONS (4)
  - DEVICE FAILURE [None]
  - POLIOMYELITIS [None]
  - SKIN INJURY [None]
  - UNEVALUABLE EVENT [None]
